FAERS Safety Report 8763942 (Version 2)
Quarter: 2012Q4

REPORT INFORMATION
  Report Type: Report from Study
  Country: US (occurrence: US)
  Receive Date: 20120911
  Receipt Date: 20121030
  Transmission Date: 20130627
  Serious: Yes (Other)
  Sender: FDA-Public Use
  Company Number: US-US-EMD SERONO, INC.-7157684

PATIENT
  Sex: Male
  Weight: 87 kg

DRUGS (2)
  1. EGRIFTA [Suspect]
     Indication: LIPODYSTROPHY ACQUIRED
     Route: 058
     Dates: end: 201208
  2. EGRIFTA [Suspect]
     Route: 058

REACTIONS (7)
  - Diabetes mellitus [Recovered/Resolved]
  - Hyperlipidaemia [Unknown]
  - Back pain [Unknown]
  - Headache [Unknown]
  - Arthralgia [Unknown]
  - Insomnia [Unknown]
  - Hypertension [Unknown]
